FAERS Safety Report 8396524-5 (Version None)
Quarter: 2012Q2

REPORT INFORMATION
  Report Type: 
  Country: None (occurrence: None)
  Receive Date: 20120530
  Receipt Date: 20120521
  Transmission Date: 20120825
  Serious: Yes (Other)
  Sender: FDA-Public Use
  Company Number: US-JNJFOC-20111205944

PATIENT
  Sex: Female

DRUGS (8)
  1. LEVAQUIN [Suspect]
     Indication: UPPER RESPIRATORY TRACT INFECTION
     Route: 048
     Dates: start: 20080801
  2. LEVAQUIN [Suspect]
     Indication: OROPHARYNGEAL PAIN
     Route: 048
     Dates: start: 20080801
  3. METHYLPREDNISOLONE [Suspect]
     Indication: DYSPNOEA
     Route: 048
  4. TAMIFLU [Suspect]
     Indication: PRODUCT USED FOR UNKNOWN INDICATION
     Route: 048
  5. LEVAQUIN [Suspect]
     Indication: KIDNEY INFECTION
     Route: 048
     Dates: start: 20080801
  6. CIPROFLOXACIN [Suspect]
     Indication: PRODUCT USED FOR UNKNOWN INDICATION
     Route: 048
  7. LEVAQUIN [Suspect]
     Indication: NASOPHARYNGITIS
     Route: 048
     Dates: start: 20080801
  8. ADVAIR DISKUS 100/50 [Suspect]
     Indication: DYSPNOEA
     Route: 048

REACTIONS (10)
  - CARDIAC DISORDER [None]
  - ROTATOR CUFF SYNDROME [None]
  - TENDON DISORDER [None]
  - TENDONITIS [None]
  - MUSCLE ENZYME INCREASED [None]
  - MUSCLE INJURY [None]
  - FALL [None]
  - INSOMNIA [None]
  - PRURITUS [None]
  - TENDON RUPTURE [None]
